FAERS Safety Report 15832745 (Version 1)
Quarter: 2018Q4

REPORT INFORMATION
  Report Type: Spontaneous
  Country: US (occurrence: US)
  Receive Date: 20181220
  Receipt Date: 20181220
  Transmission Date: 20190205
  Serious: Yes (Life-Threatening, Hospitalization)
  Sender: FDA-Public Use
  Company Number: None

PATIENT
  Age: 52 Year
  Sex: Male
  Weight: 161.03 kg

DRUGS (6)
  1. METFORMIN [Concomitant]
     Active Substance: METFORMIN HYDROCHLORIDE
  2. MULTIVITAMINS [Concomitant]
     Active Substance: VITAMINS
  3. LISINOPRIL (ZESTRIL) [Suspect]
     Active Substance: LISINOPRIL
     Indication: HYPERTENSION
     Dosage: ?          QUANTITY:20MG-40MG;?
     Route: 048
     Dates: start: 20131025
  4. SPINE STIMULATOR [Concomitant]
  5. PROCARDIA [Concomitant]
     Active Substance: NIFEDIPINE
  6. ASPIRIN. [Concomitant]
     Active Substance: ASPIRIN

REACTIONS (1)
  - Angioedema [None]

NARRATIVE: CASE EVENT DATE: 20180612
